FAERS Safety Report 25432877 (Version 1)
Quarter: 2025Q2

REPORT INFORMATION
  Report Type: Report from Study
  Country: US (occurrence: US)
  Receive Date: 20250613
  Receipt Date: 20250613
  Transmission Date: 20250716
  Serious: No
  Sender: SUNOVION
  Company Number: US-SUMITOMO PHARMA SWITZERLAND GMBH-2025SPA004892

PATIENT

DRUGS (4)
  1. ORGOVYX [Suspect]
     Active Substance: RELUGOLIX
     Indication: Prostate cancer
     Dosage: 120 MG, QD
     Route: 048
  2. XTANDI [Concomitant]
     Active Substance: ENZALUTAMIDE
     Dosage: 160 MG, QD
     Route: 065
  3. XTANDI [Concomitant]
     Active Substance: ENZALUTAMIDE
     Route: 065
  4. ROSUVASTATIN CALCIUM [Concomitant]
     Active Substance: ROSUVASTATIN CALCIUM
     Route: 065

REACTIONS (2)
  - Hot flush [Unknown]
  - Incorrect dose administered [Unknown]
